FAERS Safety Report 8554204-7 (Version None)
Quarter: 2012Q3

REPORT INFORMATION
  Report Type: 
  Country: None (occurrence: None)
  Receive Date: 20120731
  Receipt Date: 20120725
  Transmission Date: 20120928
  Serious: Yes (Death, Other)
  Sender: FDA-Public Use
  Company Number: JP-ELI_LILLY_AND_COMPANY-JP201207007879

PATIENT
  Age: 44 Year
  Sex: Female

DRUGS (2)
  1. GEMCITABINE HYDROCHLORIDE [Suspect]
     Indication: OVARIAN CANCER RECURRENT
  2. PEGYLATED LIPOSOMAL DOXORUBICIN HYDROCHLORIDE [Concomitant]
     Indication: OVARIAN CANCER RECURRENT

REACTIONS (5)
  - GASTROINTESTINAL HAEMORRHAGE [None]
  - INFECTIVE THROMBOSIS [None]
  - NEOPLASM MALIGNANT [None]
  - DEVICE RELATED INFECTION [None]
  - SHOCK [None]
